FAERS Safety Report 8187125 (Version 3)
Quarter: 2017Q1

REPORT INFORMATION
  Report Type: Spontaneous
  Country: US (occurrence: US)
  Receive Date: 20111018
  Receipt Date: 20170214
  Transmission Date: 20170429
  Serious: No
  Sender: FDA-Public Use
  Company Number: US-ASTRAZENECA-2010SE51314

PATIENT
  Age: 78 Year
  Sex: Female

DRUGS (2)
  1. SYMBICORT [Suspect]
     Active Substance: BUDESONIDE\FORMOTEROL FUMARATE DIHYDRATE
     Indication: ASTHMA
     Route: 055
  2. AMLOTOPIN [Concomitant]

REACTIONS (4)
  - Nasal discomfort [Unknown]
  - Thyroid disorder [Unknown]
  - Upper-airway cough syndrome [Unknown]
  - Throat irritation [Unknown]
